FAERS Safety Report 9153495 (Version 1)
Quarter: 2013Q1

REPORT INFORMATION
  Report Type: Spontaneous
  Country: US (occurrence: US)
  Receive Date: 20130311
  Receipt Date: 20130311
  Transmission Date: 20140127
  Serious: Yes (Hospitalization)
  Sender: FDA-Public Use
  Company Number: US-BAYER-2013-028089

PATIENT
  Age: 47 Year
  Sex: Female

DRUGS (6)
  1. YASMIN [Suspect]
     Indication: CONTRACEPTION
  2. YASMIN [Suspect]
     Indication: MENSTRUATION IRREGULAR
  3. ZITHROMAX [Concomitant]
     Dosage: 250 MG, UNK
  4. ALESSE [Concomitant]
  5. DESOGEN [DESOGESTREL,ETHINYLESTRADIOL] [Concomitant]
  6. SEASONALE [Concomitant]

REACTIONS (2)
  - Deep vein thrombosis [None]
  - Pulmonary embolism [None]
